FAERS Safety Report 9153057 (Version 4)
Quarter: 2013Q4

REPORT INFORMATION
  Report Type: Spontaneous
  Country: US (occurrence: US)
  Receive Date: 20130310
  Receipt Date: 20131203
  Transmission Date: 20140711
  Serious: Yes (Hospitalization, Other)
  Sender: FDA-Public Use
  Company Number: US-LUNDBECK-DKLU1089102

PATIENT
  Age: 10 Year
  Sex: Male

DRUGS (8)
  1. ONFI [Suspect]
     Indication: ATONIC SEIZURES
     Dates: end: 20130128
  2. ONFI [Suspect]
     Indication: MYOCLONIC EPILEPSY
  3. VALPROIC ACID [Suspect]
     Indication: MYOCLONIC EPILEPSY
  4. VALPROIC ACID [Suspect]
     Indication: ATONIC SEIZURES
  5. TOPIRAMATE [Suspect]
     Indication: MYOCLONIC EPILEPSY
     Dates: start: 201207
  6. TOPIRAMATE [Suspect]
     Indication: ATONIC SEIZURES
  7. AMOXICILLIN [Suspect]
     Indication: PHARYNGITIS STREPTOCOCCAL
  8. TRANXENE [Concomitant]
     Indication: PRODUCT USED FOR UNKNOWN INDICATION
     Dates: start: 201012

REACTIONS (5)
  - Feeding disorder [Recovered/Resolved]
  - Pharyngitis streptococcal [Recovered/Resolved]
  - Diarrhoea [Recovered/Resolved]
  - Stevens-Johnson syndrome [Recovered/Resolved]
  - Lobar pneumonia [Recovered/Resolved]
